FAERS Safety Report 5418255-3 (Version None)
Quarter: 2007Q3

REPORT INFORMATION
  Report Type: 
  Country: None (occurrence: None)
  Receive Date: 20070817
  Receipt Date: 20070810
  Transmission Date: 20080115
  Serious: Yes (Hospitalization)
  Sender: FDA-Public Use
  Company Number: B0457321A

PATIENT
  Age: 79 Year
  Sex: Male

DRUGS (1)
  1. VALTREX [Suspect]
     Indication: DRUG USE FOR UNKNOWN INDICATION
     Dosage: 6TAB PER DAY
     Route: 048

REACTIONS (3)
  - ALTERED STATE OF CONSCIOUSNESS [None]
  - OVERDOSE [None]
  - RENAL FAILURE [None]
